FAERS Safety Report 15109160 (Version 2)
Quarter: 2018Q3

REPORT INFORMATION
  Report Type: Spontaneous
  Country: IT (occurrence: IT)
  Receive Date: 20180705
  Receipt Date: 20180827
  Transmission Date: 20181010
  Serious: Yes (Hospitalization, Other)
  Sender: FDA-Public Use
  Company Number: IT-BAYER-2018-121009

PATIENT
  Age: 66 Year
  Sex: Male

DRUGS (11)
  1. FOSIPRES [Suspect]
     Active Substance: FOSINOPRIL
     Indication: CORONARY ARTERY DISEASE
     Dosage: 12.5 MG, UNK
     Route: 048
     Dates: start: 20150301, end: 20171012
  2. METFORMIN HYDROCHLORIDE. [Suspect]
     Active Substance: METFORMIN HYDROCHLORIDE
     Indication: CORONARY ARTERY DISEASE
     Dosage: 1 DF, UNK
     Dates: start: 20120301, end: 20171012
  3. CRESTOR [Suspect]
     Active Substance: ROSUVASTATIN CALCIUM
     Dosage: 1 DF, UNK
     Route: 048
  4. METFORMIN HYDROCHLORIDE. [Suspect]
     Active Substance: METFORMIN HYDROCHLORIDE
     Indication: CORONARY ARTERY DISEASE
     Dosage: 3000 MG, UNK
     Route: 048
  5. OMEPRAZOLE. [Suspect]
     Active Substance: OMEPRAZOLE
     Dosage: 20 MG, UNK
  6. FOSIPRES [Suspect]
     Active Substance: FOSINOPRIL
     Indication: CORONARY ARTERY DISEASE
     Dosage: 3000 MG, UNK
     Route: 048
  7. FOSIPRES [Suspect]
     Active Substance: FOSINOPRIL
     Indication: CORONARY ARTERY DISEASE
     Dosage: 1 DF, UNK
     Route: 048
     Dates: start: 20120301, end: 20171012
  8. METFORMIN HYDROCHLORIDE. [Suspect]
     Active Substance: METFORMIN HYDROCHLORIDE
     Indication: CORONARY ARTERY DISEASE
     Dosage: 12.5 MG, UNK
     Route: 048
     Dates: start: 20150301, end: 20171012
  9. CARVEDILOL. [Suspect]
     Active Substance: CARVEDILOL
     Indication: CORONARY ARTERY DISEASE
     Dosage: 12.5 MG, UNK
     Route: 048
     Dates: start: 20150301, end: 20171012
  10. CARDIOASPIRIN 100 MG [Suspect]
     Active Substance: ASPIRIN
     Dosage: 1 DF, UNK
     Route: 048
  11. SILODOSIN [Suspect]
     Active Substance: SILODOSIN
     Dosage: 1 DF, UNK
     Route: 048

REACTIONS (4)
  - Abdominal pain lower [Recovered/Resolved]
  - Bradycardia [Recovered/Resolved]
  - Abdominal pain upper [Recovered/Resolved]
  - Hypotension [Recovered/Resolved]

NARRATIVE: CASE EVENT DATE: 20171012
